FAERS Safety Report 4640696-2 (Version None)
Quarter: 2005Q2

REPORT INFORMATION
  Report Type: 
  Country: None (occurrence: None)
  Receive Date: 20050419
  Receipt Date: 20050406
  Transmission Date: 20051028
  Serious: Yes (Hospitalization)
  Sender: FDA-Public Use
  Company Number: CEL-2005-00478-SLO

PATIENT
  Sex: Male

DRUGS (2)
  1. DIPENTUM [Suspect]
     Indication: ILL-DEFINED DISORDER
     Dosage: PO
     Route: 048
     Dates: start: 20050219
  2. MELOXICAM [Concomitant]

REACTIONS (3)
  - CONDITION AGGRAVATED [None]
  - DISEASE RECURRENCE [None]
  - PERICARDITIS [None]
